FAERS Safety Report 16141941 (Version 1)
Quarter: 2019Q2

REPORT INFORMATION
  Report Type: Spontaneous
  Country: US (occurrence: US)
  Receive Date: 20190331
  Receipt Date: 20190331
  Transmission Date: 20190711
  Serious: Yes (Disabling)
  Sender: FDA-Public Use
  Company Number: None

PATIENT
  Sex: Female

DRUGS (3)
  1. LEXAPRO [Concomitant]
     Active Substance: ESCITALOPRAM OXALATE
  2. IUD NOS [Suspect]
     Active Substance: COPPER OR LEVONORGESTREL
  3. WOMEN^S MULTIVITAMINS [Concomitant]

REACTIONS (2)
  - Autoimmune thyroiditis [None]
  - Complication associated with device [None]

NARRATIVE: CASE EVENT DATE: 20150105
